FAERS Safety Report 20712121 (Version 2)
Quarter: 2022Q2

REPORT INFORMATION
  Report Type: Report from Study
  Country: IL (occurrence: IL)
  Receive Date: 20220414
  Receipt Date: 20220503
  Transmission Date: 20220721
  Serious: Yes (Hospitalization, Other)
  Sender: FDA-Public Use
  Company Number: IL-BRISTOL-MYERS SQUIBB COMPANY-2022-018493

PATIENT
  Age: 71 Year
  Sex: Male
  Weight: 67 kg

DRUGS (12)
  1. CABOZANTINIB [Suspect]
     Active Substance: CABOZANTINIB
     Indication: Metastatic renal cell carcinoma
     Dosage: 20-DEC-2018 TO 01-JAN-2019?THE MOST RECENT DOSE ON 30-JUN-2021?DRUG INTERRUPTED
     Route: 048
     Dates: start: 20181220
  2. TEVACUTAN [Concomitant]
     Indication: Product used for unknown indication
     Dosage: ONGOING
     Route: 061
     Dates: start: 20210505
  3. BETAMETHASONE [Concomitant]
     Active Substance: BETAMETHASONE
     Indication: Product used for unknown indication
     Dosage: ONGOING
     Route: 061
     Dates: start: 20210505
  4. METAMIZOLE [Concomitant]
     Active Substance: METAMIZOLE
     Indication: Product used for unknown indication
     Dosage: 1 DOSAGE FORM=30-UNIT NOS
     Route: 048
     Dates: start: 20210615, end: 20210722
  5. INFLUENZA VIRUS VACCINE [Concomitant]
     Active Substance: INFLUENZA VIRUS VACCINE
     Indication: Prophylaxis
     Route: 058
     Dates: start: 20191212
  6. PNEUMOVAX 23 [Concomitant]
     Active Substance: PNEUMOCOCCAL VACCINE, POLYVALENT 23
     Indication: Prophylaxis
     Route: 058
     Dates: start: 20191212
  7. PERCOCET [Concomitant]
     Active Substance: ACETAMINOPHEN\OXYCODONE HYDROCHLORIDE
     Indication: Product used for unknown indication
     Dosage: ONGOING
     Route: 048
     Dates: start: 20181125
  8. DAKTARIN GEL [Concomitant]
     Indication: Product used for unknown indication
     Route: 048
     Dates: start: 20200615
  9. CORSODYL GEL [Concomitant]
     Indication: Product used for unknown indication
     Dosage: ONGOING
     Route: 062
     Dates: start: 20200914
  10. GENTARMIN [Concomitant]
     Indication: Product used for unknown indication
     Dosage: ONGOING
     Route: 061
     Dates: start: 20210617
  11. INFLUENZA A+B [Concomitant]
     Indication: Prophylaxis
     Route: 058
     Dates: start: 20201129
  12. PROBIOTICS NOS [Concomitant]
     Active Substance: PROBIOTICS NOS
     Indication: Prophylaxis
     Route: 050
     Dates: start: 20201001

REACTIONS (2)
  - Osteonecrosis of jaw [Recovered/Resolved]
  - Condition aggravated [Recovered/Resolved]

NARRATIVE: CASE EVENT DATE: 20210701
